FAERS Safety Report 19980894 (Version 1)
Quarter: 2021Q4

REPORT INFORMATION
  Report Type: Report from Study
  Country: US (occurrence: US)
  Receive Date: 20211021
  Receipt Date: 20211021
  Transmission Date: 20220303
  Serious: Yes (Other)
  Sender: FDA-Public Use
  Company Number: US-ALXN-A202106568AA

PATIENT
  Age: 52 Year
  Sex: Female

DRUGS (2)
  1. SOLIRIS [Suspect]
     Active Substance: ECULIZUMAB
     Indication: Paroxysmal nocturnal haemoglobinuria
     Dosage: UNK
     Route: 065
  2. XARELTO [Concomitant]
     Active Substance: RIVAROXABAN
     Indication: Product used for unknown indication
     Dosage: UNK
     Route: 065

REACTIONS (24)
  - Hypokalaemia [Unknown]
  - Neoplasm malignant [Unknown]
  - Haemorrhage [Unknown]
  - Haemoglobin decreased [Unknown]
  - Haemolysis [Unknown]
  - Lower respiratory tract infection [Unknown]
  - Anaemia [Unknown]
  - Blood pressure increased [Unknown]
  - Suspected COVID-19 [Unknown]
  - Ageusia [Unknown]
  - Feeling abnormal [Unknown]
  - Madarosis [Unknown]
  - Mental fatigue [Unknown]
  - Emotional distress [Unknown]
  - Gene mutation [Unknown]
  - Amnesia [Unknown]
  - Hysterectomy [Unknown]
  - Joint swelling [Unknown]
  - Fatigue [Unknown]
  - Palpitations [Unknown]
  - Anxiety [Unknown]
  - Urinary tract infection [Unknown]
  - Back pain [Unknown]
  - Pyrexia [Unknown]

NARRATIVE: CASE EVENT DATE: 20210601
